FAERS Safety Report 5802961-2 (Version None)
Quarter: 2008Q3

REPORT INFORMATION
  Report Type: 
  Country: None (occurrence: None)
  Receive Date: 20080708
  Receipt Date: 20080628
  Transmission Date: 20090109
  Serious: Yes (Hospitalization)
  Sender: FDA-Public Use
  Company Number: CH-EISAI MEDICAL RESEARCH-E2090-00486-SOL-CH

PATIENT
  Age: 47 Year
  Sex: Male
  Weight: 90 kg

DRUGS (4)
  1. ZONEGRAN [Suspect]
     Indication: EPILEPSY
     Route: 048
     Dates: start: 20071115
  2. ZONEGRAN [Suspect]
     Dosage: UNKNOWN
     Route: 048
  3. LAMOTRIGINE [Concomitant]
     Indication: EPILEPSY
     Route: 048
  4. LEVETIRACETAM [Concomitant]
     Indication: EPILEPSY
     Route: 048

REACTIONS (2)
  - DEPRESSION [None]
  - RENAL PAIN [None]
